FAERS Safety Report 8614978-3 (Version None)
Quarter: 2012Q3

REPORT INFORMATION
  Report Type: 
  Country: None (occurrence: None)
  Receive Date: 20120823
  Receipt Date: 20120820
  Transmission Date: 20120928
  Serious: Yes (Other)
  Sender: FDA-Public Use
  Company Number: US-BAYER-2012-086740

PATIENT
  Age: 53 Year
  Sex: Male
  Weight: 73 kg

DRUGS (1)
  1. ALKA-SELTZER ORIGINAL [Suspect]
     Indication: ABDOMINAL DISCOMFORT
     Route: 048

REACTIONS (5)
  - THROAT TIGHTNESS [None]
  - LIP SWELLING [None]
  - URTICARIA [None]
  - HYPERSENSITIVITY [None]
  - SWELLING FACE [None]
